FAERS Safety Report 11294700 (Version 1)
Quarter: 2015Q3

REPORT INFORMATION
  Report Type: Spontaneous
  Country: US (occurrence: None)
  Receive Date: 20150722
  Receipt Date: 20150722
  Transmission Date: 20151125
  Serious: Yes (Other)
  Sender: FDA-Public Use
  Company Number: None

PATIENT
  Age: 63 Year
  Sex: Female
  Weight: 67.3 kg

DRUGS (2)
  1. SIMPLY RIGHT ACETAMINOPHEN [Suspect]
     Active Substance: ACETAMINOPHEN
     Indication: BACK PAIN
     Dosage: 2 @ 500 MG 4 TO 6 HOURS
     Route: 048
     Dates: start: 201306
  2. SIMPLY RIGHT IBUPROFEN [Suspect]
     Active Substance: IBUPROFEN

REACTIONS (1)
  - Extrasystoles [None]

NARRATIVE: CASE EVENT DATE: 20130625
